FAERS Safety Report 8199689 (Version 2)
Quarter: 2013Q1

REPORT INFORMATION
  Report Type: Report from Study
  Country: US (occurrence: US)
  Receive Date: 20111025
  Receipt Date: 20130215
  Transmission Date: 20140127
  Serious: Yes (Life-Threatening)
  Sender: FDA-Public Use
  Company Number: US-ROCHE-1003057

PATIENT
  Age: 73 Year
  Sex: Male
  Weight: 78 kg

DRUGS (11)
  1. BEVACIZUMAB [Suspect]
     Indication: NON-SMALL CELL LUNG CANCER
     Route: 042
     Dates: start: 20110725, end: 20110906
  2. PACLITAXEL [Suspect]
     Indication: NON-SMALL CELL LUNG CANCER
     Route: 042
     Dates: start: 20110725, end: 20110906
  3. CARBOPLATIN [Suspect]
     Indication: NON-SMALL CELL LUNG CANCER
     Route: 042
     Dates: start: 20110725, end: 20110906
  4. AUGMENTIN [Concomitant]
  5. CREON [Concomitant]
  6. LANTUS [Concomitant]
  7. NOVOLOG [Concomitant]
  8. PANTOPRAZOLE [Concomitant]
  9. CARVEDILOL [Concomitant]
     Route: 065
  10. LISINOPRIL [Concomitant]
  11. CETIRIZINE HYDROCHLORIDE [Concomitant]

REACTIONS (1)
  - Suicidal ideation [Recovered/Resolved]
